FAERS Safety Report 9771157 (Version 2)
Quarter: 2013Q4

REPORT INFORMATION
  Report Type: Report from Study
  Country: US (occurrence: US)
  Receive Date: 20131218
  Receipt Date: 20131218
  Transmission Date: 20140711
  Serious: Yes (Hospitalization, Other)
  Sender: FDA-Public Use
  Company Number: US-ABBVIE-13P-163-1147292-00

PATIENT
  Age: 60 Year
  Sex: Female
  Weight: 67.19 kg

DRUGS (12)
  1. HUMIRA [Suspect]
     Indication: RHEUMATOID ARTHRITIS
     Dates: start: 2010, end: 2013
  2. METHOTREXATE [Concomitant]
     Indication: RHEUMATOID ARTHRITIS
  3. PREDNISONE [Concomitant]
     Indication: RHEUMATOID ARTHRITIS
  4. FOLIC ACID [Concomitant]
     Indication: VITAMIN SUPPLEMENTATION
  5. VITAMIN B12 [Concomitant]
     Indication: VITAMIN SUPPLEMENTATION
  6. LEVOTHYROXINE [Concomitant]
     Indication: HYPOTHYROIDISM
  7. OMEPRAZOLE [Concomitant]
     Indication: GASTROOESOPHAGEAL REFLUX DISEASE
  8. CELEXA [Concomitant]
     Indication: DEPRESSION
  9. ATIVAN [Concomitant]
     Indication: ANXIETY
  10. HYDROXYZINE [Concomitant]
     Indication: ANXIETY
  11. LISINOPRIL [Concomitant]
     Indication: HYPERTENSION
  12. METOPROLOL [Concomitant]
     Indication: HYPERTENSION

REACTIONS (12)
  - Blood potassium abnormal [Recovered/Resolved]
  - Blood sodium abnormal [Recovered/Resolved]
  - Hip arthroplasty [Unknown]
  - Rheumatoid arthritis [Recovered/Resolved]
  - Osteoarthritis [Recovered/Resolved]
  - Fluid overload [Recovered/Resolved]
  - Pancreatitis [Recovered/Resolved]
  - Pneumonia [Recovered/Resolved]
  - Back pain [Recovered/Resolved]
  - Abdominal pain [Recovered/Resolved]
  - Nausea [Recovered/Resolved]
  - Vomiting [Recovered/Resolved]
